FAERS Safety Report 9595070 (Version 2)
Quarter: 2013Q4

REPORT INFORMATION
  Report Type: Spontaneous
  Country: JP (occurrence: JP)
  Receive Date: 20131004
  Receipt Date: 20131004
  Transmission Date: 20140711
  Serious: Yes (Other)
  Sender: FDA-Public Use
  Company Number: JP-009507513-2011SP036385

PATIENT
  Age: 18 Year
  Sex: Male
  Weight: 66 kg

DRUGS (4)
  1. PEG-INTRON [Suspect]
     Indication: CHRONIC HEPATITIS C
     Dosage: 100 ?G, QW
     Route: 058
  2. PEG-INTRON [Suspect]
     Dosage: UNK
     Route: 058
  3. REBETOL [Suspect]
     Indication: CHRONIC HEPATITIS C
     Dosage: UNK
     Route: 048
  4. REBETOL [Suspect]
     Dosage: 400 MG, BID
     Route: 048

REACTIONS (1)
  - Aplasia pure red cell [Unknown]
